FAERS Safety Report 24794620 (Version 1)
Quarter: 2024Q4

REPORT INFORMATION
  Report Type: Report from Study
  Country: TW (occurrence: TW)
  Receive Date: 20241231
  Receipt Date: 20241231
  Transmission Date: 20250115
  Serious: Yes (Hospitalization)
  Sender: JOHNSON AND JOHNSON
  Company Number: TW-JNJFOC-20241278425

PATIENT
  Age: 71 Year
  Sex: Male

DRUGS (5)
  1. SIMPONI [Suspect]
     Active Substance: GOLIMUMAB
     Indication: Rheumatoid arthritis
     Route: 058
     Dates: start: 20140703, end: 20241125
  2. SIMPONI [Suspect]
     Active Substance: GOLIMUMAB
  3. SIMPONI [Suspect]
     Active Substance: GOLIMUMAB
  4. ISONIAZID [Concomitant]
     Active Substance: ISONIAZID
  5. RIFAMPIN [Concomitant]
     Active Substance: RIFAMPIN

REACTIONS (2)
  - Lymphadenopathy mediastinal [Not Recovered/Not Resolved]
  - Tuberculosis of intrathoracic lymph nodes [Not Recovered/Not Resolved]

NARRATIVE: CASE EVENT DATE: 20240726
